FAERS Safety Report 9771916 (Version 1)
Quarter: 2013Q4

REPORT INFORMATION
  Report Type: Spontaneous
  Country: US (occurrence: None)
  Receive Date: 20131001
  Receipt Date: 20131001
  Transmission Date: 20140711
  Serious: Yes (Other)
  Sender: FDA-Public Use
  Company Number: 2013-001

PATIENT
  Age: 62 Year
  Sex: Female
  Weight: 65.77 kg

DRUGS (6)
  1. URIBEL [Suspect]
     Indication: CYSTITIS INTERSTITIAL
     Dosage: 4 CAPSULES
     Route: 048
     Dates: start: 201301
  2. PRISTIQ [Suspect]
     Indication: FIBROMYALGIA
     Dosage: 1 TABLET
     Route: 048
     Dates: start: 20130808
  3. PRISTIQ [Suspect]
     Indication: DEPRESSION
     Dosage: 1 TABLET
     Route: 048
     Dates: start: 20130808
  4. ELMIRON [Concomitant]
  5. VIIBRYD [Concomitant]
  6. URIBEL [Concomitant]

REACTIONS (4)
  - Drug interaction [None]
  - Feeling abnormal [None]
  - Dyspnoea [None]
  - Panic attack [None]
